FAERS Safety Report 12344277 (Version 2)
Quarter: 2016Q2

REPORT INFORMATION
  Report Type: Spontaneous
  Country: US (occurrence: US)
  Receive Date: 20160507
  Receipt Date: 20160630
  Transmission Date: 20160815
  Serious: Yes (Hospitalization)
  Sender: FDA-Public Use
  Company Number: US-JNJFOC-20160327479

PATIENT
  Age: 89 Year
  Sex: Male

DRUGS (3)
  1. XARELTO [Suspect]
     Active Substance: RIVAROXABAN
     Indication: THROMBOSIS PROPHYLAXIS
     Dosage: RIVAROXABAN WAS GIVEN IN VARYING DOSES OF 10MG AND 15MG
     Route: 048
     Dates: start: 201206, end: 201211
  2. XARELTO [Suspect]
     Active Substance: RIVAROXABAN
     Indication: ATRIAL FIBRILLATION
     Dosage: RIVAROXABAN WAS GIVEN IN VARYING DOSES OF 10MG AND 15MG
     Route: 048
     Dates: start: 201206, end: 201211
  3. XARELTO [Suspect]
     Active Substance: RIVAROXABAN
     Indication: CEREBROVASCULAR ACCIDENT PROPHYLAXIS
     Dosage: RIVAROXABAN WAS GIVEN IN VARYING DOSES OF 10MG AND 15MG
     Route: 048
     Dates: start: 201206, end: 201211

REACTIONS (1)
  - Aortic aneurysm rupture [Unknown]

NARRATIVE: CASE EVENT DATE: 20121126
